FAERS Safety Report 24735474 (Version 1)
Quarter: 2024Q4

REPORT INFORMATION
  Report Type: Spontaneous
  Country: US (occurrence: None)
  Receive Date: 20241216
  Receipt Date: 20241216
  Transmission Date: 20250114
  Serious: Yes (Hospitalization)
  Sender: UMEDICA LABS
  Company Number: US-Umedica-000622

PATIENT
  Age: 84 Year
  Sex: Male

DRUGS (1)
  1. SILDENAFIL CITRATE [Suspect]
     Active Substance: SILDENAFIL CITRATE
     Indication: Product used for unknown indication
     Dosage: PILLS, ONE TIME
     Dates: start: 2024, end: 2024

REACTIONS (3)
  - Hypotension [Recovering/Resolving]
  - Full blood count abnormal [Recovering/Resolving]
  - Cardiac dysfunction [Recovering/Resolving]

NARRATIVE: CASE EVENT DATE: 20240101
